FAERS Safety Report 4303693-2 (Version None)
Quarter: 2004Q1

REPORT INFORMATION
  Report Type: 
  Country: None (occurrence: None)
  Receive Date: 20040204
  Receipt Date: 20021127
  Transmission Date: 20041129
  Serious: Yes (Life-Threatening)
  Sender: FDA-Public Use
  Company Number: RESPIGAM-00425

PATIENT
  Age: 34 Month
  Sex: Male
  Weight: 9.1 kg

DRUGS (5)
  1. RESPIGAM [Suspect]
     Indication: PROPHYLAXIS
     Dosage: 6.75 G Q30D IV
     Dates: start: 20021121, end: 20021121
  2. RESPIGAM [Suspect]
     Indication: RESPIRATORY SYNCYTIAL VIRUS INFECTION
     Dosage: 6.75 G Q30D IV
     Dates: start: 20021121, end: 20021121
  3. TACROLIMUS [Concomitant]
  4. PREDNISOLONE [Concomitant]
  5. ACYCLOVIR [Concomitant]

REACTIONS (5)
  - CHILLS [None]
  - COUGH [None]
  - DYSPNOEA [None]
  - OXYGEN SATURATION DECREASED [None]
  - WHEEZING [None]
